FAERS Safety Report 14550919 (Version 1)
Quarter: 2018Q1

REPORT INFORMATION
  Report Type: Spontaneous
  Country: US (occurrence: US)
  Receive Date: 20180220
  Receipt Date: 20180220
  Transmission Date: 20180509
  Serious: No
  Sender: FDA-Public Use
  Company Number: US-TEVA-772979USA

PATIENT
  Sex: Female

DRUGS (2)
  1. DEXTROAMPHET SACCHARAT, AMPHET ASPARTATE, DEXTROAMPHET SULFATE AND AMPHET SULFAT [Suspect]
     Active Substance: AMPHETAMINE ASPARTATE\AMPHETAMINE SULFATE\DEXTROAMPHETAMINE SACCHARATE\DEXTROAMPHETAMINE SULFATE
     Indication: HYPERSOMNIA
     Route: 065
  2. AMPHETAMINE W/DEXTROAMPHETAMINE [Suspect]
     Active Substance: AMPHETAMINE SULFATE\DEXTROAMPHETAMINE
     Indication: HYPERSOMNIA
     Route: 065

REACTIONS (11)
  - Palpitations [Unknown]
  - Impatience [Unknown]
  - Negative thoughts [Unknown]
  - Product use in unapproved indication [Unknown]
  - Drooling [Unknown]
  - Adverse event [Unknown]
  - Feeling abnormal [Unknown]
  - Impulsive behaviour [Unknown]
  - Anxiety [Unknown]
  - Personality disorder [Unknown]
  - Loss of personal independence in daily activities [Unknown]
